FAERS Safety Report 24685682 (Version 1)
Quarter: 2024Q4

REPORT INFORMATION
  Report Type: Spontaneous
  Country: CL (occurrence: CL)
  Receive Date: 20241202
  Receipt Date: 20241202
  Transmission Date: 20250114
  Serious: Yes (Death)
  Sender: NOVARTIS
  Company Number: CL-002147023-NVSC2024CL229247

PATIENT
  Age: 56 Year
  Sex: Female

DRUGS (25)
  1. SANDOSTATIN LAR DEPOT [Suspect]
     Active Substance: OCTREOTIDE ACETATE
     Indication: Pancreatic carcinoma
     Dosage: 20 MG
     Route: 030
     Dates: start: 202111
  2. SANDOSTATIN LAR DEPOT [Suspect]
     Active Substance: OCTREOTIDE ACETATE
     Dosage: 30 MG
     Route: 030
     Dates: start: 202111
  3. SANDOSTATIN LAR DEPOT [Suspect]
     Active Substance: OCTREOTIDE ACETATE
  4. EVEROLIMUS [Suspect]
     Active Substance: EVEROLIMUS
     Indication: Pancreatic carcinoma
     Dosage: UNK
     Route: 030
     Dates: start: 202111
  5. SANDOSTATIN [Suspect]
     Active Substance: OCTREOTIDE ACETATE
     Indication: Hepatic cancer
     Dosage: 30 MG
     Route: 065
     Dates: start: 20220104
  6. SANDOSTATIN [Suspect]
     Active Substance: OCTREOTIDE ACETATE
     Dosage: 30 MG
     Route: 065
     Dates: start: 20220207
  7. SANDOSTATIN [Suspect]
     Active Substance: OCTREOTIDE ACETATE
     Dosage: 30 MG
     Route: 065
     Dates: start: 20220428
  8. FENTANYL [Concomitant]
     Active Substance: FENTANYL
     Indication: Product used for unknown indication
     Dosage: 50 MG
     Route: 065
     Dates: start: 20210211
  9. FENTANYL [Concomitant]
     Active Substance: FENTANYL
     Dosage: 50 MG
     Route: 065
     Dates: start: 20210311
  10. FENTANYL [Concomitant]
     Active Substance: FENTANYL
     Dosage: 50 MG
     Route: 065
     Dates: start: 20210409
  11. FENTANYL [Concomitant]
     Active Substance: FENTANYL
     Dosage: 50 MG
     Route: 065
     Dates: start: 20210519
  12. FENTANYL [Concomitant]
     Active Substance: FENTANYL
     Dosage: 50 MG
     Route: 065
     Dates: start: 20210705
  13. FENTANYL [Concomitant]
     Active Substance: FENTANYL
     Dosage: 50 MG
     Route: 065
     Dates: start: 20210806
  14. FENTANYL [Concomitant]
     Active Substance: FENTANYL
     Dosage: 50 MG
     Route: 065
     Dates: start: 20210924
  15. FENTANYL [Concomitant]
     Active Substance: FENTANYL
     Dosage: 50 MG
     Route: 065
     Dates: start: 20211029
  16. FENTANYL [Concomitant]
     Active Substance: FENTANYL
     Dosage: 50 MG
     Route: 065
     Dates: start: 20220114
  17. FENTANYL [Concomitant]
     Active Substance: FENTANYL
     Dosage: 50 MG
     Route: 065
     Dates: start: 20220204
  18. FENTANYL [Concomitant]
     Active Substance: FENTANYL
     Dosage: 25 MG
     Route: 065
     Dates: start: 20220307
  19. FENTANYL [Concomitant]
     Active Substance: FENTANYL
     Dosage: 50 MG
     Route: 065
     Dates: start: 20220314
  20. FENTANYL [Concomitant]
     Active Substance: FENTANYL
     Dosage: 50 MG
     Route: 065
     Dates: start: 20220405
  21. FENTANYL [Concomitant]
     Active Substance: FENTANYL
     Dosage: 50 MG
     Route: 065
     Dates: start: 20220419
  22. FENTANYL [Concomitant]
     Active Substance: FENTANYL
     Dosage: 25 MG
     Route: 065
     Dates: start: 20220601
  23. FENTANYL [Concomitant]
     Active Substance: FENTANYL
     Dosage: 50 MG
     Route: 065
     Dates: start: 20220601
  24. FENTANYL [Concomitant]
     Active Substance: FENTANYL
     Dosage: 50 MG
     Route: 065
     Dates: start: 20220713
  25. FENTANYL [Concomitant]
     Active Substance: FENTANYL
     Dosage: 50 MG
     Route: 065
     Dates: start: 20211207

REACTIONS (2)
  - Death [Fatal]
  - Sciatica [Unknown]
